FAERS Safety Report 9932697 (Version 1)
Quarter: 2014Q1

REPORT INFORMATION
  Report Type: Spontaneous
  Country: US (occurrence: US)
  Receive Date: 20140228
  Receipt Date: 20140228
  Transmission Date: 20141002
  Serious: No
  Sender: FDA-Public Use
  Company Number: US-GLAXOSMITHKLINE-A1025849A

PATIENT
  Age: 32 Year
  Sex: Female

DRUGS (3)
  1. LAMICTAL [Suspect]
     Indication: BIPOLAR DISORDER
     Dosage: 300MG PER DAY
     Route: 048
     Dates: start: 201211
  2. BUSPAR [Concomitant]
  3. SUPPLEMENT [Concomitant]

REACTIONS (5)
  - Pyrexia [Unknown]
  - Rash [Unknown]
  - Blister [Unknown]
  - Clumsiness [Unknown]
  - Neurological symptom [Unknown]
